FAERS Safety Report 19030320 (Version 2)
Quarter: 2021Q2

REPORT INFORMATION
  Report Type: Spontaneous
  Country: US (occurrence: US)
  Receive Date: 20210319
  Receipt Date: 20210414
  Transmission Date: 20210717
  Serious: Yes (Other)
  Sender: FDA-Public Use
  Company Number: US-DRREDDYS-USA/USA/21/0132697

PATIENT
  Age: 71 Year
  Sex: Male

DRUGS (8)
  1. CARBIDOPA 25 MG, LEVODOPA 250 MG [Concomitant]
     Indication: PARKINSON^S DISEASE PSYCHOSIS
     Dosage: CARBIDOPA 25MG AND LEVODOPA 250MG
  2. QUETIAPINE FUMARATE TABLETS [Suspect]
     Active Substance: QUETIAPINE FUMARATE
     Indication: PARKINSON^S DISEASE PSYCHOSIS
     Dates: start: 2017, end: 2017
  3. CITALOPRAM [Concomitant]
     Active Substance: CITALOPRAM HYDROBROMIDE
     Indication: DEPRESSION
  4. QUETIAPINE FUMARATE TABLETS [Suspect]
     Active Substance: QUETIAPINE FUMARATE
     Dates: start: 2017, end: 2017
  5. QUETIAPINE FUMARATE TABLETS [Suspect]
     Active Substance: QUETIAPINE FUMARATE
     Dosage: IN THE MORNING
     Dates: start: 2017
  6. QUETIAPINE FUMARATE TABLETS [Suspect]
     Active Substance: QUETIAPINE FUMARATE
     Dates: start: 2017, end: 2017
  7. QUETIAPINE FUMARATE TABLETS [Suspect]
     Active Substance: QUETIAPINE FUMARATE
     Dosage: IN THE EVENING
     Dates: start: 2017
  8. CARBIDOPA 25 MG, LEVODOPA 250 MG [Concomitant]
     Dosage: CARBIDOPA 25MG AND LEVODOPA 250MG

REACTIONS (3)
  - Somnolence [Unknown]
  - Sedation complication [Unknown]
  - Thinking abnormal [Unknown]

NARRATIVE: CASE EVENT DATE: 2017
